FAERS Safety Report 7943449-2 (Version None)
Quarter: 2011Q4

REPORT INFORMATION
  Report Type: 
  Country: None (occurrence: None)
  Receive Date: 20111128
  Receipt Date: 20111114
  Transmission Date: 20120403
  Serious: Yes (Other)
  Sender: FDA-Public Use
  Company Number: KR-TEVA-310094ISR

PATIENT
  Sex: Male

DRUGS (16)
  1. METHOTREXATE [Suspect]
     Indication: RHEUMATOID ARTHRITIS
     Dates: start: 20030324
  2. NAPROXEN [Concomitant]
     Dates: start: 20070428
  3. PREDNISOLONE [Concomitant]
     Dates: start: 20080705
  4. BISOPROLOL FUMARATE [Concomitant]
     Dates: start: 20081112
  5. ABATACEPT [Suspect]
     Route: 042
     Dates: start: 20080107
  6. ACETAMINOPHEN [Concomitant]
     Dates: start: 20080705
  7. ASPIRIN [Concomitant]
     Dates: start: 20080428
  8. REPAGLINIDE [Concomitant]
     Dates: start: 20090622
  9. FOLATE (FOLIC ACID) [Concomitant]
     Dates: start: 20030916
  10. ABATACEPT [Suspect]
     Indication: RHEUMATOID ARTHRITIS
     Dates: start: 20070723, end: 20071210
  11. RANITIDINE [Concomitant]
     Dates: start: 20030916
  12. TRAMADOL HCL [Concomitant]
     Dates: start: 20080705
  13. ALENDRONATE SODIUM [Concomitant]
     Dates: start: 20070303
  14. ISOSORBIDE DINITRATE [Concomitant]
     Dates: start: 20080517
  15. ROSUVASTATIN [Concomitant]
     Dates: start: 20101124
  16. METFORMIN HCL [Concomitant]
     Dates: start: 20091012

REACTIONS (1)
  - GASTRIC CANCER [None]
